FAERS Safety Report 21307155 (Version 1)
Quarter: 2022Q3

REPORT INFORMATION
  Report Type: Spontaneous
  Country: US (occurrence: None)
  Receive Date: 20220908
  Receipt Date: 20220908
  Transmission Date: 20221027
  Serious: Yes (Hospitalization, Other)
  Sender: FDA-Public Use
  Company Number: US-MLMSERVICE-20220824-3756125-1

PATIENT
  Age: 64 Year
  Sex: Male

DRUGS (2)
  1. DICLOFENAC [Suspect]
     Active Substance: DICLOFENAC
     Indication: Pain in extremity
     Dosage: FOR 21/2 WEEKS
     Route: 061
  2. METRONIDAZOLE [Concomitant]
     Active Substance: METRONIDAZOLE
     Route: 061

REACTIONS (3)
  - Drug reaction with eosinophilia and systemic symptoms [Recovering/Resolving]
  - Human herpesvirus 6 infection [Recovering/Resolving]
  - Cholecystitis [Recovered/Resolved]
